FAERS Safety Report 8716131 (Version 2)
Quarter: 2013Q1

REPORT INFORMATION
  Report Type: Spontaneous
  Country: US (occurrence: US)
  Receive Date: 20120809
  Receipt Date: 20130318
  Transmission Date: 20140127
  Serious: Yes (Other)
  Sender: FDA-Public Use
  Company Number: US-RB-038130-12

PATIENT
  Sex: Female

DRUGS (4)
  1. SUBUTEX [Suspect]
     Indication: DRUG DEPENDENCE
     Dosage: 7 MG
     Route: 065
     Dates: start: 2011
  2. ZANTAC [Concomitant]
     Indication: GASTROOESOPHAGEAL REFLUX DISEASE
     Route: 065
  3. PRENATAL VITAMIN [Concomitant]
     Indication: PREGNANCY
     Dosage: UNKNOWN DOSING DETAILS
     Route: 065
  4. PHENERGAN [Concomitant]
     Indication: NAUSEA
     Dosage: DOSING DETAILS UNKNOWN TAKES AS NEEDED
     Route: 065

REACTIONS (3)
  - Exposure during pregnancy [Recovered/Resolved]
  - Oligohydramnios [Recovered/Resolved]
  - Wrong technique in drug usage process [Unknown]
